FAERS Safety Report 5513843-8 (Version None)
Quarter: 2007Q4

REPORT INFORMATION
  Report Type: 
  Country: None (occurrence: None)
  Receive Date: 20071113
  Receipt Date: 20071104
  Transmission Date: 20080405
  Serious: Yes (Other)
  Sender: FDA-Public Use
  Company Number: US-JNJFOC-20071101600

PATIENT
  Age: 16 Year
  Sex: Male

DRUGS (3)
  1. REMICADE [Suspect]
     Route: 042
  2. REMICADE [Suspect]
     Dosage: 3 TREATMENTS 2 WEEKS APART
     Route: 042
  3. REMICADE [Suspect]
     Indication: INFLAMMATORY BOWEL DISEASE
     Dosage: ON INFLIXIMAB FOR OVER 14 MONTHS
     Route: 042

REACTIONS (5)
  - PAIN [None]
  - RASH [None]
  - SKIN EXFOLIATION [None]
  - SKIN HAEMORRHAGE [None]
  - SKIN LESION [None]
